FAERS Safety Report 5800502-7 (Version None)
Quarter: 2008Q3

REPORT INFORMATION
  Report Type: 
  Country: None (occurrence: None)
  Receive Date: 20080703
  Receipt Date: 20080623
  Transmission Date: 20090109
  Serious: Yes (Hospitalization)
  Sender: FDA-Public Use
  Company Number: B0526816A

PATIENT
  Age: 60 Year
  Sex: Female

DRUGS (1)
  1. MALARONE [Suspect]
     Route: 048
     Dates: start: 20080606, end: 20080609

REACTIONS (5)
  - CEREBRAL MALARIA [None]
  - CONFUSIONAL STATE [None]
  - DEPRESSED LEVEL OF CONSCIOUSNESS [None]
  - DYSARTHRIA [None]
  - THROMBOPHLEBITIS [None]
